FAERS Safety Report 9156660 (Version 1)
Quarter: 2013Q1

REPORT INFORMATION
  Report Type: Spontaneous
  Country: DE (occurrence: None)
  Receive Date: 20130206
  Receipt Date: 20130206
  Transmission Date: 20140127
  Serious: Yes (Hospitalization)
  Sender: FDA-Public Use
  Company Number: 2013MPI00034

PATIENT
  Sex: 0

DRUGS (10)
  1. BRENTUXIMAB VEDOTIN (BRENTUXIMAB VEDOTIN) INJECTION [Suspect]
     Indication: HODGKIN^S DISEASE
     Dates: start: 20130109, end: 20130109
  2. CYCLOPHOSPHAMIDE (CYCLOPHOSPHAMIDE) [Suspect]
     Indication: HODGKIN^S DISEASE
     Dates: start: 20130110, end: 20130110
  3. DOXORUBICIN (DOXORUBICIN) (DOXORUBICIN) [Suspect]
     Indication: HODGKIN^S DISEASE
     Dates: start: 20130110, end: 20130110
  4. ETOPOSIDE (ETOPOSIDE) [Suspect]
     Indication: HODGKIN^S DISEASE
     Dates: start: 20130110, end: 20130112
  5. PROCARBAZINE (PROCARBAZINE) [Suspect]
     Indication: HODGKIN^S DISEASE
     Dates: start: 20130110, end: 20130116
  6. PREDNISONE (PREDNISONE) [Suspect]
     Indication: HODGKIN^S DISEASE
     Dates: start: 20130110, end: 20130123
  7. KEVATRIL [Suspect]
     Indication: PRODUCT USED FOR UNKNOWN INDICATION
     Dates: start: 20130110, end: 20130112
  8. VALORON (TILIDINE HYDROCHLORIDE) [Concomitant]
  9. PANTOZOL (ERYTHROMYCIN ETHYLSUCCINATE, SULFAFURAZOLE) [Concomitant]
  10. CIPROFLOXACIN (CIPROFLOXACIN HYDROCHLORIDE) [Concomitant]

REACTIONS (3)
  - Abdominal pain upper [None]
  - Constipation [None]
  - Neutropenia [None]
